FAERS Safety Report 5563533-0 (Version None)
Quarter: 2007Q4

REPORT INFORMATION
  Report Type: 
  Country: None (occurrence: None)
  Receive Date: 20071217
  Receipt Date: 20070817
  Transmission Date: 20080405
  Serious: Yes (Other)
  Sender: FDA-Public Use
  Company Number: US-ASTRAZENECA-2007UW14664

PATIENT
  Age: 76 Year
  Sex: Male

DRUGS (7)
  1. CRESTOR [Suspect]
     Indication: BLOOD CHOLESTEROL INCREASED
     Route: 048
  2. ZETIA [Concomitant]
  3. FOLIC ACID [Concomitant]
  4. TOPROL-XL [Concomitant]
     Route: 048
  5. TOPROL-XL [Concomitant]
     Route: 048
  6. ATACAND [Concomitant]
     Route: 048
  7. ATACAND [Concomitant]
     Route: 048

REACTIONS (5)
  - BLOOD PRESSURE DECREASED [None]
  - DIZZINESS [None]
  - HEART RATE DECREASED [None]
  - PRESYNCOPE [None]
  - VASODILATATION [None]
